FAERS Safety Report 6739733-0 (Version None)
Quarter: 2010Q2

REPORT INFORMATION
  Report Type: 
  Country: None (occurrence: None)
  Receive Date: 20100525
  Receipt Date: 20100518
  Transmission Date: 20101027
  Serious: Yes (Other)
  Sender: FDA-Public Use
  Company Number: US-BAYER-201018299NA

PATIENT
  Age: 52 Year
  Sex: Female
  Weight: 86 kg

DRUGS (14)
  1. AVELOX [Suspect]
     Indication: ACUTE SINUSITIS
     Dosage: TOTAL DAILY DOSE: 400 MG  UNIT DOSE: 400 MG
     Route: 048
     Dates: start: 20100217, end: 20100227
  2. NASONEX [Concomitant]
  3. SINGULAIR [Concomitant]
  4. ZYRTEC [Concomitant]
  5. BENADRYL [Concomitant]
  6. BUPROPION XC [Concomitant]
  7. JANUVIA [Concomitant]
  8. LISINOPRIL [Concomitant]
  9. VYTORIN [Concomitant]
  10. PRILOSEC [Concomitant]
  11. MULTI-VITAMIN [Concomitant]
  12. CALCIUM SUPPLEMENT [Concomitant]
  13. OSTEOBIOFLEX [Concomitant]
  14. PREDNISONE [Concomitant]

REACTIONS (1)
  - AMNESIA [None]
